FAERS Safety Report 9457861 (Version 1)
Quarter: 2013Q3

REPORT INFORMATION
  Report Type: Spontaneous
  Country: US (occurrence: None)
  Receive Date: 20130809
  Receipt Date: 20130809
  Transmission Date: 20140515
  Serious: Yes (Other)
  Sender: FDA-Public Use
  Company Number: ADR-2013-01341

PATIENT
  Age: 57 Year
  Sex: Female

DRUGS (15)
  1. LIORESAL [Suspect]
     Indication: MUSCLE SPASTICITY
     Dosage: DAY
  2. BACLOFEN [Concomitant]
  3. EFFEXOR XR [Concomitant]
  4. AMPYRA [Concomitant]
  5. ATENOLOL 25 [Concomitant]
  6. LASIX [Concomitant]
  7. SPIRONOLACTONE [Concomitant]
  8. NASONEX [Concomitant]
  9. COUMADIN [Concomitant]
  10. ATORVASTATIN [Concomitant]
  11. VITAMIN C [Concomitant]
  12. METAMUCIL [Concomitant]
  13. MULTIVITAMIN [Concomitant]
  14. CLONAZEPAM [Concomitant]
  15. CLOBETASOL LOTION [Concomitant]

REACTIONS (3)
  - Spinal column stenosis [None]
  - Asthenia [None]
  - Muscle spasticity [None]
